FAERS Safety Report 18564574 (Version 1)
Quarter: 2020Q4

REPORT INFORMATION
  Report Type: Spontaneous
  Country: EE (occurrence: EE)
  Receive Date: 20201201
  Receipt Date: 20201201
  Transmission Date: 20210114
  Serious: Yes (Other)
  Sender: FDA-Public Use
  Company Number: EE-JNJFOC-20201140665

PATIENT
  Age: 33 Year
  Sex: Female
  Weight: 64 kg

DRUGS (5)
  1. XEPLION [Suspect]
     Active Substance: PALIPERIDONE PALMITATE
     Indication: SCHIZOAFFECTIVE DISORDER
     Dosage: ; CYCLICAL
     Route: 030
     Dates: start: 20200915, end: 20200915
  2. XEPLION [Suspect]
     Active Substance: PALIPERIDONE PALMITATE
     Dosage: ; CYCLICAL
     Route: 030
     Dates: start: 20200811, end: 20200811
  3. XEPLION [Suspect]
     Active Substance: PALIPERIDONE PALMITATE
     Dosage: ; CYCLICAL
     Route: 030
     Dates: start: 20200818, end: 20200818
  4. XEPLION [Suspect]
     Active Substance: PALIPERIDONE PALMITATE
     Dosage: ; CYCLICAL
     Route: 030
     Dates: start: 20201013, end: 20201013
  5. QUETIAPINE FUMARATE. [Concomitant]
     Active Substance: QUETIAPINE FUMARATE
     Indication: SLEEP DISORDER
     Route: 048
     Dates: start: 20200616, end: 20201004

REACTIONS (3)
  - Abortion spontaneous [Recovered/Resolved]
  - Hyperprolactinaemia [Recovering/Resolving]
  - Galactorrhoea [Unknown]

NARRATIVE: CASE EVENT DATE: 2020
